FAERS Safety Report 23704022 (Version 2)
Quarter: 2024Q3

REPORT INFORMATION
  Report Type: Spontaneous
  Country: US (occurrence: US)
  Receive Date: 20240403
  Receipt Date: 20240709
  Transmission Date: 20241017
  Serious: No
  Sender: BIOGEN
  Company Number: US-BIOGEN-2023BI01239628

PATIENT
  Sex: Female

DRUGS (3)
  1. SKYCLARYS [Suspect]
     Active Substance: OMAVELOXOLONE
     Indication: Friedreich^s ataxia
     Dosage: 50 MILLIGRAM 3 CAPSULES ONCE BY MOUTH DAILY
     Route: 050
     Dates: start: 20230704
  2. SKYCLARYS [Suspect]
     Active Substance: OMAVELOXOLONE
     Route: 050
     Dates: start: 20230704
  3. SKYCLARYS [Suspect]
     Active Substance: OMAVELOXOLONE
     Route: 050
     Dates: start: 20230704

REACTIONS (8)
  - Underdose [Unknown]
  - Night sweats [Unknown]
  - Irritable bowel syndrome [Unknown]
  - Tremor [Not Recovered/Not Resolved]
  - Conjunctivitis [Unknown]
  - Temperature regulation disorder [Unknown]
  - Eye disorder [Unknown]
  - Product dose omission issue [Unknown]
